FAERS Safety Report 8591356-7 (Version None)
Quarter: 2012Q3

REPORT INFORMATION
  Report Type: 
  Country: None (occurrence: None)
  Receive Date: 20120730
  Receipt Date: 20120724
  Transmission Date: 20120928
  Serious: Yes (Hospitalization)
  Sender: FDA-Public Use
  Company Number: 2012031760

PATIENT
  Sex: Female
  Weight: 63.5036 kg

DRUGS (11)
  1. HIZENTRA [Suspect]
  2. LEXAPRO [Concomitant]
  3. AMOXICILLIN [Concomitant]
  4. ALBUTEROL [Concomitant]
  5. HIZENTRA [Suspect]
  6. FORADIL [Concomitant]
  7. NORETHINEDRONE (NORETHISTERONE) [Concomitant]
  8. SINGULAIR [Concomitant]
  9. LORATADINE [Concomitant]
  10. HIZENTRA [Suspect]
     Indication: IMMUNODEFICIENCY COMMON VARIABLE
     Dosage: SEE IMAGE
     Route: 058
  11. QVAR 40 [Concomitant]

REACTIONS (3)
  - LARYNGITIS FUNGAL [None]
  - MATERNAL EXPOSURE DURING PREGNANCY [None]
  - FATIGUE [None]
